FAERS Safety Report 7942706-3 (Version None)
Quarter: 2011Q4

REPORT INFORMATION
  Report Type: 
  Country: None (occurrence: None)
  Receive Date: 20111122
  Receipt Date: 20110811
  Transmission Date: 20120403
  Serious: Yes (Other)
  Sender: FDA-Public Use
  Company Number: PHHY2011US52100

PATIENT
  Age: 45 Year
  Sex: Female

DRUGS (3)
  1. GILENYA [Suspect]
     Indication: MULTIPLE SCLEROSIS
     Dosage: 0.5 MG, QD, ORAL
     Route: 048
     Dates: start: 20110608
  2. DITROPAN XL [Concomitant]
  3. AMBIEN [Concomitant]

REACTIONS (4)
  - DYSPNOEA [None]
  - POLLAKIURIA [None]
  - LETHARGY [None]
  - HEART RATE DECREASED [None]
